FAERS Safety Report 7274006-1 (Version None)
Quarter: 2011Q1

REPORT INFORMATION
  Report Type: 
  Country: None (occurrence: None)
  Receive Date: 20110203
  Receipt Date: 20110127
  Transmission Date: 20110831
  Serious: Yes (Hospitalization)
  Sender: FDA-Public Use
  Company Number: FR-AMGEN-FRASP2011005079

PATIENT
  Age: 73 Year
  Sex: Male

DRUGS (4)
  1. GEMZAR [Concomitant]
     Indication: PANCREATIC CARCINOMA
     Dosage: UNK
     Route: 042
     Dates: start: 20100901, end: 20101208
  2. ATACAND [Concomitant]
     Indication: HYPERTENSION
     Dosage: UNK
     Route: 048
     Dates: end: 20101229
  3. CREON [Concomitant]
     Dosage: UNK
     Route: 048
     Dates: start: 20100901
  4. ARANESP [Suspect]
     Indication: PRODUCT USED FOR UNKNOWN INDICATION
     Dosage: UNK
     Route: 065
     Dates: start: 20101126, end: 20101126

REACTIONS (2)
  - PULMONARY ARTERIAL HYPERTENSION [None]
  - ENCEPHALOPATHY [None]
